FAERS Safety Report 17017918 (Version 1)
Quarter: 2019Q4

REPORT INFORMATION
  Report Type: Report from Study
  Country: DE (occurrence: DE)
  Receive Date: 20191111
  Receipt Date: 20191111
  Transmission Date: 20200122
  Serious: Yes (Death, Hospitalization)
  Sender: FDA-Public Use
  Company Number: NVSC2019DE029146

PATIENT
  Sex: Female
  Weight: 64 kg

DRUGS (1)
  1. GILENYA [Suspect]
     Active Substance: FINGOLIMOD HYDROCHLORIDE
     Indication: MULTIPLE SCLEROSIS
     Dosage: 0.5 MG, QD
     Route: 048
     Dates: start: 20140129, end: 201910

REACTIONS (12)
  - Hepatic enzyme increased [Fatal]
  - Tremor [Recovered/Resolved]
  - Abdominal pain upper [Fatal]
  - Scintillating scotoma [Recovered/Resolved]
  - Lung neoplasm malignant [Fatal]
  - Hepatic neoplasm [Fatal]
  - Hypoaesthesia [Fatal]
  - Fatigue [Fatal]
  - Ataxia [Fatal]
  - Diplopia [Recovered/Resolved]
  - Multiple sclerosis relapse [Recovered/Resolved]
  - Headache [Recovered/Resolved]

NARRATIVE: CASE EVENT DATE: 20190917
